FAERS Safety Report 6674040-6 (Version None)
Quarter: 2010Q2

REPORT INFORMATION
  Report Type: 
  Country: None (occurrence: None)
  Receive Date: 20100409
  Receipt Date: 20091218
  Transmission Date: 20101027
  Serious: Yes (Other)
  Sender: FDA-Public Use
  Company Number: US-JNJFOC-20090602667

PATIENT
  Sex: Female
  Weight: 88 kg

DRUGS (13)
  1. LEVAQUIN [Suspect]
     Indication: RHINITIS
     Route: 048
  2. LEVAQUIN [Suspect]
     Dosage: 10 DAYS
     Route: 048
  3. LEVAQUIN [Suspect]
     Route: 048
  4. LEVAQUIN [Suspect]
     Dosage: 10 DAYS
     Route: 048
  5. LEVAQUIN [Suspect]
     Indication: SINUSITIS
     Dosage: 10 DAYS
     Route: 048
  6. LEVAQUIN [Suspect]
     Dosage: 10 DAYS
     Route: 048
  7. LEVAQUIN [Suspect]
     Route: 048
  8. LEVAQUIN [Suspect]
     Route: 048
  9. PREDNISONE TAB [Suspect]
     Indication: INFLAMMATION
     Route: 048
  10. COZAAR [Concomitant]
     Indication: HYPERTENSION
     Route: 048
  11. BECONASE [Concomitant]
     Indication: SINUS DISORDER
     Route: 045
  12. PULMICORT [Concomitant]
     Indication: ASTHMA
     Route: 055
  13. XOPENEX [Concomitant]
     Indication: ASTHMA
     Route: 055

REACTIONS (10)
  - BRONCHITIS [None]
  - BURSITIS [None]
  - DRUG INEFFECTIVE [None]
  - LIGAMENT INJURY [None]
  - LIGAMENT RUPTURE [None]
  - OSTEOARTHRITIS [None]
  - ROTATOR CUFF SYNDROME [None]
  - SINUSITIS [None]
  - TENDON DISORDER [None]
  - TENDONITIS [None]
